FAERS Safety Report 7190467-0 (Version None)
Quarter: 2010Q4

REPORT INFORMATION
  Report Type: 
  Country: None (occurrence: None)
  Receive Date: 20101221
  Receipt Date: 20101221
  Transmission Date: 20110411
  Serious: Yes (Other)
  Sender: FDA-Public Use
  Company Number: None

PATIENT
  Sex: Female
  Weight: 112.9457 kg

DRUGS (2)
  1. ACTOS [Suspect]
     Indication: DIABETES MELLITUS
     Dates: start: 20090101, end: 20100126
  2. ACTOPLUS MET [Suspect]
     Indication: DIABETES MELLITUS
     Dates: start: 20070101, end: 20090101

REACTIONS (5)
  - DYSPNOEA [None]
  - FOOT FRACTURE [None]
  - JOINT SWELLING [None]
  - OEDEMA PERIPHERAL [None]
  - WEIGHT INCREASED [None]
